FAERS Safety Report 5521074-0 (Version None)
Quarter: 2007Q4

REPORT INFORMATION
  Report Type: 
  Country: None (occurrence: None)
  Receive Date: 20071115
  Receipt Date: 20071101
  Transmission Date: 20080405
  Serious: Yes (Hospitalization)
  Sender: FDA-Public Use
  Company Number: 239411K07USA

PATIENT
  Age: 69 Year
  Sex: Female

DRUGS (5)
  1. REBIF [Suspect]
     Indication: MULTIPLE SCLEROSIS
     Dosage: 44 MCG, 3 IN 1 WEEKS, SUBCUTANEOUS
     Route: 058
     Dates: start: 20031117
  2. NAPROXEN [Concomitant]
  3. METOPROLOL TARTRATE [Concomitant]
  4. LISINOPRTL(LISINOPRIL) [Concomitant]
  5. ANTIDEPRESSANT(ANTIDEPRESSANTS) [Concomitant]

REACTIONS (3)
  - ABDOMINAL PAIN UPPER [None]
  - BLOOD COUNT ABNORMAL [None]
  - GASTRIC HAEMORRHAGE [None]
